FAERS Safety Report 19788552 (Version 1)
Quarter: 2021Q3

REPORT INFORMATION
  Report Type: Spontaneous
  Country: IT (occurrence: IT)
  Receive Date: 20210903
  Receipt Date: 20210903
  Transmission Date: 20211014
  Serious: Yes (Life-Threatening, Other)
  Sender: FDA-Public Use
  Company Number: IT-BAXTER-2021BAX027114

PATIENT
  Age: 49 Year
  Sex: Female

DRUGS (4)
  1. EXOMAX, 2 MG/ML. SOLUZIONE PER INFUSIONE [Suspect]
     Active Substance: FLUCONAZOLE
     Indication: CRYPTOCOCCOSIS
     Route: 065
     Dates: start: 2018
  2. EXOMAX, 2 MG/ML. SOLUZIONE PER INFUSIONE [Suspect]
     Active Substance: FLUCONAZOLE
     Indication: PROPHYLAXIS
     Route: 065
     Dates: start: 2018
  3. FLUCONAZOLE. [Suspect]
     Active Substance: FLUCONAZOLE
     Route: 048
  4. EXOMAX, 2 MG/ML. SOLUZIONE PER INFUSIONE [Suspect]
     Active Substance: FLUCONAZOLE
     Route: 065
     Dates: start: 201901

REACTIONS (2)
  - Drug resistance [Unknown]
  - Pathogen resistance [Unknown]

NARRATIVE: CASE EVENT DATE: 2019
